FAERS Safety Report 15714493 (Version 4)
Quarter: 2019Q2

REPORT INFORMATION
  Report Type: Spontaneous
  Country: US (occurrence: US)
  Receive Date: 20181212
  Receipt Date: 20190513
  Transmission Date: 20190711
  Serious: Yes (Hospitalization, Other)
  Sender: FDA-Public Use
  Company Number: US-PFIZER INC-2017150029

PATIENT
  Age: 57 Year
  Sex: Male
  Weight: 113 kg

DRUGS (6)
  1. LYRICA [Suspect]
     Active Substance: PREGABALIN
     Indication: NEUROPATHY PERIPHERAL
     Dosage: 50 MG, 1X/DAY
  2. LYRICA [Suspect]
     Active Substance: PREGABALIN
     Dosage: 50 MG, 2X/DAY
  3. LYRICA [Suspect]
     Active Substance: PREGABALIN
     Dosage: 200 MG, 2X/DAY (TAKE 1 CAPSULE IN THE MORNING AND 1 CAPSULE AT NIGHT)
     Route: 048
     Dates: start: 201506
  4. LYRICA [Suspect]
     Active Substance: PREGABALIN
     Dosage: 300 MG, UNK
     Route: 048
  5. LYRICA [Suspect]
     Active Substance: PREGABALIN
     Indication: AUTONOMIC NEUROPATHY
     Dosage: 150 MG, UNK
  6. GABAPENTIN. [Concomitant]
     Active Substance: GABAPENTIN
     Dosage: UNK

REACTIONS (2)
  - Drug ineffective [Unknown]
  - Pneumonia [Not Recovered/Not Resolved]

NARRATIVE: CASE EVENT DATE: 20181101
